FAERS Safety Report 9441147 (Version 1)
Quarter: 2013Q3

REPORT INFORMATION
  Report Type: Spontaneous
  Country: AE (occurrence: AE)
  Receive Date: 20130805
  Receipt Date: 20130805
  Transmission Date: 20140515
  Serious: Yes (Death, Life-Threatening, Hospitalization, Other)
  Sender: FDA-Public Use
  Company Number: AE-GLAXOSMITHKLINE-B0913014A

PATIENT
  Age: 39 Year
  Sex: Female

DRUGS (1)
  1. VOTRIENT [Suspect]
     Indication: SARCOMA
     Dosage: 200MG FOUR TIMES PER DAY
     Route: 048
     Dates: start: 201302, end: 201306

REACTIONS (1)
  - Rectal haemorrhage [Fatal]
